FAERS Safety Report 4590620-6 (Version None)
Quarter: 2005Q1

REPORT INFORMATION
  Report Type: 
  Country: None (occurrence: None)
  Receive Date: 20050224
  Receipt Date: 20050218
  Transmission Date: 20050727
  Serious: Yes (Hospitalization)
  Sender: FDA-Public Use
  Company Number: FR-BRISTOL-MYERS SQUIBB COMPANY-12871869

PATIENT
  Age: 62 Year
  Sex: Male

DRUGS (3)
  1. MODITEN TABS [Suspect]
     Route: 048
     Dates: start: 19950615, end: 20040619
  2. PARKINANE [Suspect]
     Route: 048
     Dates: start: 19950615, end: 20040619
  3. XELODA [Suspect]
     Indication: COLON CANCER
     Route: 048
     Dates: start: 20040513, end: 20040622

REACTIONS (4)
  - AGRANULOCYTOSIS [None]
  - DRUG TOXICITY [None]
  - HAEMATOTOXICITY [None]
  - MENTAL DISORDER [None]
